FAERS Safety Report 5645230-6 (Version None)
Quarter: 2008Q1

REPORT INFORMATION
  Report Type: 
  Country: None (occurrence: None)
  Receive Date: 20080229
  Receipt Date: 20080220
  Transmission Date: 20080703
  Serious: No
  Sender: FDA-Public Use
  Company Number: US-JNJFOC-20071109722

PATIENT
  Sex: Male
  Weight: 90.72 kg

DRUGS (2)
  1. ULTRAM ER [Suspect]
     Indication: PAIN
     Dosage: ONLY ONE DOSE TAKEN
     Route: 048
  2. LISINOPRIL [Concomitant]
     Indication: BLOOD PRESSURE

REACTIONS (8)
  - CHEST DISCOMFORT [None]
  - DYSPNOEA [None]
  - HEART RATE INCREASED [None]
  - HYPERHIDROSIS [None]
  - HYPERSENSITIVITY [None]
  - HYPERTENSION [None]
  - HYPOAESTHESIA [None]
  - LETHARGY [None]
